FAERS Safety Report 18255917 (Version 1)
Quarter: 2020Q3

REPORT INFORMATION
  Report Type: Report from Study
  Country: US (occurrence: US)
  Receive Date: 20200911
  Receipt Date: 20200911
  Transmission Date: 20201103
  Serious: No
  Sender: FDA-Public Use
  Company Number: US-RECORDATI RARE DISEASES-2089651

PATIENT
  Age: 51 Year
  Sex: Male

DRUGS (3)
  1. BUMEX [Suspect]
     Active Substance: BUMETANIDE
     Dates: start: 20200807, end: 20200812
  2. METOLAZONE. [Suspect]
     Active Substance: METOLAZONE
     Dates: start: 20200807, end: 20200812
  3. ISTURISA [Suspect]
     Active Substance: OSILODROSTAT PHOSPHATE
     Indication: CUSHING^S SYNDROME
     Dates: start: 20200804

REACTIONS (4)
  - Abdominal distension [Unknown]
  - Palpitations [Unknown]
  - Myalgia [Recovering/Resolving]
  - Fatigue [Unknown]

NARRATIVE: CASE EVENT DATE: 202008
